FAERS Safety Report 8042886-8 (Version None)
Quarter: 2012Q1

REPORT INFORMATION
  Report Type: 
  Country: None (occurrence: None)
  Receive Date: 20120112
  Receipt Date: 20120104
  Transmission Date: 20120608
  Serious: Yes (Hospitalization, Other)
  Sender: FDA-Public Use
  Company Number: US-ASTRAZENECA-2011SE62709

PATIENT
  Age: 60 Year
  Sex: Male

DRUGS (2)
  1. TOPROL-XL [Suspect]
     Route: 048
  2. NEXIUM [Suspect]
     Route: 048

REACTIONS (5)
  - GASTRIC ULCER HAEMORRHAGE [None]
  - RECTAL HAEMORRHAGE [None]
  - DIABETES MELLITUS [None]
  - HAEMORRHAGE [None]
  - DRUG DOSE OMISSION [None]
